FAERS Safety Report 7690276-X (Version None)
Quarter: 2011Q3

REPORT INFORMATION
  Report Type: 
  Country: None (occurrence: None)
  Receive Date: 20110818
  Receipt Date: 20110815
  Transmission Date: 20111222
  Serious: No
  Sender: FDA-Public Use
  Company Number: US-PFIZER INC-2011187725

PATIENT
  Sex: Male
  Weight: 18.141 kg

DRUGS (2)
  1. KEPPRA [Concomitant]
     Indication: CONVULSION
     Dosage: UNK
     Dates: start: 20090101
  2. CHILDREN'S ADVIL COLD [Suspect]
     Indication: EAR INFECTION
     Dosage: ONE TEASPOONFUL, FREQUENCY UNKNOWN
     Route: 048
     Dates: start: 20110801

REACTIONS (2)
  - NAUSEA [None]
  - VOMITING [None]
